FAERS Safety Report 24706613 (Version 1)
Quarter: 2024Q4

REPORT INFORMATION
  Report Type: Spontaneous
  Country: US (occurrence: None)
  Receive Date: 20241206
  Receipt Date: 20241206
  Transmission Date: 20250115
  Serious: Yes (Hospitalization)
  Sender: Public
  Company Number: None

PATIENT
  Age: 40 Year
  Sex: Male

DRUGS (1)
  1. COSENTYX [Suspect]
     Active Substance: SECUKINUMAB
     Indication: Hidradenitis
     Dosage: 300MG EVERY 4 WEEKS SUBCUTANEOUS
     Route: 058
     Dates: start: 202401

REACTIONS (2)
  - Condition aggravated [None]
  - Gastric bypass [None]

NARRATIVE: CASE EVENT DATE: 20241105
